FAERS Safety Report 10502652 (Version 1)
Quarter: 2014Q4

REPORT INFORMATION
  Report Type: Spontaneous
  Country: US (occurrence: None)
  Receive Date: 20141003
  Receipt Date: 20141003
  Transmission Date: 20150528
  Serious: Yes (Other)
  Sender: FDA-Public Use
  Company Number: HA14-353-AE

PATIENT
  Age: 49 Year
  Sex: Female
  Weight: 68.49 kg

DRUGS (10)
  1. GABAPENTIN CAPSULES, USP 300 MG (AMNEAL) [Suspect]
     Active Substance: GABAPENTIN
     Indication: FIBROMYALGIA
     Dosage: 5 CAPSULES A DAY, ORAL
     Route: 048
     Dates: start: 201404
  2. VITAMIN B12 [Concomitant]
     Active Substance: CYANOCOBALAMIN
  3. OMEPRAZOLE. [Concomitant]
     Active Substance: OMEPRAZOLE
  4. PROVENTIL HFA INHALER [Concomitant]
  5. MIRTAZAPINE. [Concomitant]
     Active Substance: MIRTAZAPINE
  6. CLONAZEPAM. [Concomitant]
     Active Substance: CLONAZEPAM
  7. ESCITALOPRAM [Concomitant]
     Active Substance: ESCITALOPRAM OXALATE
  8. RANITIDINE [Concomitant]
     Active Substance: RANITIDINE\RANITIDINE HYDROCHLORIDE
  9. VITAMIN D [Concomitant]
     Active Substance: CHOLECALCIFEROL
  10. BACLOFEN. [Concomitant]
     Active Substance: BACLOFEN

REACTIONS (7)
  - Fall [None]
  - Gait disturbance [None]
  - Memory impairment [None]
  - Pain [None]
  - Nausea [None]
  - Osteoarthritis [None]
  - Drug ineffective [None]

NARRATIVE: CASE EVENT DATE: 201404
